FAERS Safety Report 19130983 (Version 1)
Quarter: 2021Q2

REPORT INFORMATION
  Report Type: Other
  Country: FR (occurrence: FR)
  Receive Date: 20210414
  Receipt Date: 20210414
  Transmission Date: 20210717
  Serious: Yes (Other)
  Sender: FDA-Public Use
  Company Number: FR-DENTSPLY-2021SCDP000106

PATIENT
  Age: 11 Year
  Sex: Male

DRUGS (1)
  1. PRILOCAINE AND LIDOCAINE [Suspect]
     Active Substance: LIDOCAINE\PRILOCAINE
     Indication: PRODUCT USED FOR UNKNOWN INDICATION
     Dosage: UNK EMLAPATCH 5 PERCENT, ADHESIVE SKIN DRESSING, 2 PATCHS : 1 PATCH PAR BRAS
     Route: 003
     Dates: start: 20210313, end: 20210313

REACTIONS (4)
  - Urinary incontinence [Recovered/Resolved]
  - Feeling abnormal [None]
  - Loss of consciousness [None]
  - Pallor [None]

NARRATIVE: CASE EVENT DATE: 20210313
